FAERS Safety Report 23891742 (Version 2)
Quarter: 2024Q2

REPORT INFORMATION
  Report Type: Spontaneous
  Country: JP (occurrence: None)
  Receive Date: 20240524
  Receipt Date: 20240531
  Transmission Date: 20240715
  Serious: Yes (Hospitalization)
  Sender: FDA-Public Use
  Company Number: 2024A118316

PATIENT
  Age: 20 Year
  Sex: Male

DRUGS (13)
  1. NEXIUM [Suspect]
     Active Substance: ESOMEPRAZOLE MAGNESIUM
     Indication: Gastrooesophageal reflux disease
     Dosage: DOSE UNKNOWN
     Route: 048
     Dates: start: 202211, end: 20240510
  2. ALESION [Concomitant]
     Active Substance: EPINASTINE HYDROCHLORIDE
     Dosage: DOSE UNKNOWN
     Route: 065
  3. TIZANIDINE [Concomitant]
     Active Substance: TIZANIDINE
     Dosage: DOSE UNKNOWN
     Route: 065
  4. BENZALIN [Concomitant]
     Dosage: DOSE UNKNOWN
     Route: 065
  5. LIORESAL [Concomitant]
     Active Substance: BACLOFEN
     Dosage: DOSE UNKNOWN
     Route: 065
  6. LEVOMEPROMAZINE [Concomitant]
     Active Substance: LEVOMEPROMAZINE
     Dosage: DOSE UNKNOWN
     Route: 065
  7. TRICLOFOS SODIUM [Concomitant]
     Active Substance: TRICLOFOS SODIUM
     Dosage: DOSE UNKNOWN
     Route: 048
  8. MAGNESIUM OXIDE [Concomitant]
     Active Substance: MAGNESIUM OXIDE
     Dosage: DOSE UNKNOWN
     Route: 065
  9. HERBAL NOS [Concomitant]
     Active Substance: HERBALS
     Dosage: DOSE UNKNOWN
     Route: 065
  10. ETHYL LOFLAZEPATE [Concomitant]
     Active Substance: ETHYL LOFLAZEPATE
     Dosage: DOSE UNKNOWN
  11. SODIUM PICOSULFATE [Concomitant]
     Active Substance: SODIUM PICOSULFATE
     Dosage: DOSE UNKNOWN
     Route: 065
  12. RAMELTEON [Concomitant]
     Active Substance: RAMELTEON
     Dosage: DOSE UNKNOWN
     Route: 065
  13. ADESTOLMIN [Concomitant]
     Dosage: DOSE UNKNOWN
     Route: 065

REACTIONS (2)
  - Haemolytic anaemia [Recovering/Resolving]
  - Pancytopenia [Recovering/Resolving]

NARRATIVE: CASE EVENT DATE: 20240510
